FAERS Safety Report 9447282 (Version 3)
Quarter: 2013Q4

REPORT INFORMATION
  Report Type: Spontaneous
  Country: US (occurrence: US)
  Receive Date: 20130808
  Receipt Date: 20131009
  Transmission Date: 20140711
  Serious: No
  Sender: FDA-Public Use
  Company Number: US-009507513-1308USA002896

PATIENT
  Age: 22 Year
  Sex: 0
  Weight: 79.37 kg

DRUGS (2)
  1. NEXPLANON [Suspect]
     Dosage: 1 DF, 68 MG, UNK
     Route: 059
     Dates: start: 20130805, end: 20130805
  2. NEXPLANON [Suspect]
     Dosage: 1 DF, UNK
     Route: 059
     Dates: start: 20130805

REACTIONS (4)
  - Device deployment issue [Recovered/Resolved]
  - Device difficult to use [Recovered/Resolved]
  - No adverse event [Unknown]
  - Product quality issue [Unknown]
